FAERS Safety Report 7321558-9 (Version None)
Quarter: 2011Q1

REPORT INFORMATION
  Report Type: 
  Country: None (occurrence: None)
  Receive Date: 20110228
  Receipt Date: 20100420
  Transmission Date: 20110831
  Serious: No
  Sender: FDA-Public Use
  Company Number: A0855893A

PATIENT
  Age: 48 Year
  Sex: Female

DRUGS (2)
  1. UNKNOWN MEDICATION [Concomitant]
  2. VALTREX [Suspect]
     Dosage: 1G PER DAY
     Route: 048

REACTIONS (1)
  - ARTHRALGIA [None]
